FAERS Safety Report 4983441-3 (Version None)
Quarter: 2006Q2

REPORT INFORMATION
  Report Type: 
  Country: None (occurrence: None)
  Receive Date: 20060426
  Receipt Date: 20050218
  Transmission Date: 20061013
  Serious: Yes (Hospitalization, Disabling)
  Sender: FDA-Public Use
  Company Number: US-MERCK-0502USA02887

PATIENT
  Age: 40 Year
  Sex: Female
  Weight: 68 kg

DRUGS (8)
  1. VIOXX [Suspect]
     Indication: PAIN
     Route: 048
     Dates: start: 20040216, end: 20040901
  2. VIOXX [Suspect]
     Route: 048
     Dates: start: 20040216, end: 20040901
  3. VIOXX [Suspect]
     Indication: SWELLING
     Route: 048
     Dates: start: 20040216, end: 20040901
  4. VIOXX [Suspect]
     Route: 048
     Dates: start: 20040216, end: 20040901
  5. GABAPENTIN [Concomitant]
     Route: 065
  6. KEPPRA [Concomitant]
     Route: 065
  7. PENTOXIFYLLINE [Concomitant]
     Route: 065
  8. HYDROCODONE BITARTRATE [Concomitant]
     Route: 065

REACTIONS (2)
  - GANGRENE [None]
  - TRANSIENT ISCHAEMIC ATTACK [None]
